FAERS Safety Report 18448510 (Version 1)
Quarter: 2020Q4

REPORT INFORMATION
  Report Type: Spontaneous
  Country: GB (occurrence: GB)
  Receive Date: 20201031
  Receipt Date: 20201031
  Transmission Date: 20210114
  Serious: Yes (Other)
  Sender: FDA-Public Use
  Company Number: GB-TEVA-2020-GB-1842405

PATIENT
  Age: 19 Year
  Sex: Male
  Weight: 72 kg

DRUGS (11)
  1. EPIPEN [Concomitant]
     Active Substance: EPINEPHRINE
     Dosage: IMMEDIATELY  WHEN REQUIRED
     Dates: start: 20190806
  2. DIPROBASE [Concomitant]
     Active Substance: CHLOROCRESOL
     Dosage: APPLY
     Dates: start: 20180216
  3. FEXOFENADINE [Concomitant]
     Active Substance: FEXOFENADINE HYDROCHLORIDE
     Dosage: 1 DF
     Dates: start: 20180911
  4. SALBUTAMOL [Concomitant]
     Active Substance: ALBUTEROL
     Dosage: 2 DF
     Route: 055
     Dates: start: 20200117
  5. IBUPROFEN. [Suspect]
     Active Substance: IBUPROFEN
     Dosage: 200 MG
     Dates: start: 20200928
  6. PREDNISOLONE. [Concomitant]
     Active Substance: PREDNISOLONE
     Dosage: 6 DOSAGE FORMS DAILY; EVERY MORNING
     Dates: start: 20200928
  7. CLENIL MODULITE [Concomitant]
     Active Substance: BECLOMETHASONE DIPROPIONATE
     Dosage: 4 DF
     Route: 055
     Dates: start: 20160128
  8. NASOFAN AQUEOUS [Concomitant]
     Active Substance: FLUTICASONE PROPIONATE
     Dosage: 4 DF, 2 SPRAY INTO EACH NOSTRIL
     Route: 045
     Dates: start: 20140624
  9. DERMOL [Concomitant]
     Active Substance: BENZALKONIUM CHLORIDE\CHLORHEXIDINE HYDROCHLORIDE\ISOPROPYL MYRISTATE\PARAFFIN
     Dosage: AS DIRECTED
     Dates: start: 20180216
  10. BETNOVATE [Concomitant]
     Active Substance: BETAMETHASONE
     Indication: SKIN DISORDER
     Dosage: 2 DF, USE SPARINGLY ONLY WHEN SKIN BAD
     Dates: start: 20140624
  11. FUCIBET [Concomitant]
     Dosage: 1 DF, APPLY THINLY TWICE DAILY, NEVER TO...
     Dates: start: 20121220

REACTIONS (1)
  - Face oedema [Recovering/Resolving]

NARRATIVE: CASE EVENT DATE: 20200928
